FAERS Safety Report 7103035-3 (Version None)
Quarter: 2010Q4

REPORT INFORMATION
  Report Type: 
  Country: None (occurrence: None)
  Receive Date: 20101115
  Receipt Date: 20101108
  Transmission Date: 20110411
  Serious: Yes (Death)
  Sender: FDA-Public Use
  Company Number: CN-GENZYME-CERZ-1001616

PATIENT

DRUGS (5)
  1. CEREZYME [Suspect]
     Indication: GAUCHER'S DISEASE
     Dosage: 30 U/KG, Q4W
     Route: 042
     Dates: start: 20100101, end: 20100101
  2. CEREZYME [Suspect]
     Dosage: 75 U/KG, Q2W
     Route: 042
     Dates: start: 20000801, end: 20100101
  3. CARBAMAZEPINE [Concomitant]
     Indication: CONVULSION
  4. VALPROATE SODIUM [Concomitant]
     Indication: EPILEPSY
  5. DIANXIANLING [Concomitant]
     Indication: CONVULSION

REACTIONS (1)
  - CONVULSION [None]
